FAERS Safety Report 17680009 (Version 1)
Quarter: 2020Q2

REPORT INFORMATION
  Report Type: Spontaneous
  Country: US (occurrence: US)
  Receive Date: 20200417
  Receipt Date: 20200417
  Transmission Date: 20200714
  Serious: Yes (Hospitalization, Other)
  Sender: FDA-Public Use
  Company Number: US-ASTRAZENECA-2020SE49851

PATIENT

DRUGS (3)
  1. ELIQUISE [Concomitant]
  2. BRILINTA [Suspect]
     Active Substance: TICAGRELOR
     Dosage: 90.0MG UNKNOWN
     Route: 048
  3. ASPIRIN. [Concomitant]
     Active Substance: ASPIRIN

REACTIONS (4)
  - Wound dehiscence [Unknown]
  - Acute coronary syndrome [Unknown]
  - Atrial fibrillation [Unknown]
  - Haematoma [Unknown]
